FAERS Safety Report 12372933 (Version 1)
Quarter: 2016Q2

REPORT INFORMATION
  Report Type: Spontaneous
  Country: US (occurrence: US)
  Receive Date: 20160516
  Receipt Date: 20160516
  Transmission Date: 20160815
  Serious: Yes (Hospitalization, Other)
  Sender: FDA-Public Use
  Company Number: ADR-2015-01510

PATIENT
  Age: 50 Year
  Sex: Male

DRUGS (1)
  1. BACLOFEN. [Suspect]
     Active Substance: BACLOFEN
     Route: 037

REACTIONS (3)
  - Implant site infection [Unknown]
  - Medical device site erythema [Unknown]
  - Medical device site discharge [Unknown]

NARRATIVE: CASE EVENT DATE: 20101013
